FAERS Safety Report 7282654-8 (Version None)
Quarter: 2011Q1

REPORT INFORMATION
  Report Type: 
  Country: None (occurrence: None)
  Receive Date: 20110128
  Receipt Date: 20110120
  Transmission Date: 20110831
  Serious: Yes (Death)
  Sender: FDA-Public Use
  Company Number: 1000018313

PATIENT
  Age: 54 Year
  Sex: Female

DRUGS (1)
  1. DILTIAZEM HCL [Suspect]

REACTIONS (4)
  - COMPLETED SUICIDE [None]
  - INTENTIONAL OVERDOSE [None]
  - CARDIAC ARREST [None]
  - RESPIRATORY ARREST [None]
